FAERS Safety Report 7023372-0 (Version None)
Quarter: 2010Q3

REPORT INFORMATION
  Report Type: 
  Country: None (occurrence: None)
  Receive Date: 20100930
  Receipt Date: 20100920
  Transmission Date: 20110219
  Serious: Yes (Hospitalization)
  Sender: FDA-Public Use
  Company Number: US-ELI_LILLY_AND_COMPANY-US201006002506

PATIENT
  Sex: Female
  Weight: 60.317 kg

DRUGS (18)
  1. FORTEO [Suspect]
     Indication: OSTEOARTHRITIS
     Dosage: 20 UG, DAILY (1/D)
     Route: 065
     Dates: start: 20090916
  2. LEVOTHYROXINE SODIUM [Concomitant]
  3. DIOVAN [Concomitant]
  4. OMEPRAZOLE [Concomitant]
  5. TYLENOL (CAPLET) [Concomitant]
  6. CALCIUM WITH VITAMIN D [Concomitant]
  7. LOVAZA [Concomitant]
  8. COQ10 [Concomitant]
  9. VITAMIN E [Concomitant]
  10. ASCORBIC ACID [Concomitant]
  11. MULTIVITAMIN AND MINERAL [Concomitant]
  12. VITAMIN B COMPLEX CAP [Concomitant]
  13. CLONIDINE [Concomitant]
  14. ZYRTEC [Concomitant]
  15. MELATONIN [Concomitant]
  16. FLOVENT [Concomitant]
  17. NASONEX [Concomitant]
  18. PROVENTIL /00139501/ [Concomitant]

REACTIONS (6)
  - ARTHRITIS [None]
  - FALL [None]
  - INJECTION SITE HAEMATOMA [None]
  - JOINT INJURY [None]
  - LIGAMENT RUPTURE [None]
  - PAIN [None]
